FAERS Safety Report 21527428 (Version 1)
Quarter: 2022Q4

REPORT INFORMATION
  Report Type: Spontaneous
  Country: CN (occurrence: CN)
  Receive Date: 20221031
  Receipt Date: 20221031
  Transmission Date: 20230113
  Serious: Yes (Life-Threatening, Other)
  Sender: FDA-Public Use
  Company Number: CN-Accord-283668

PATIENT
  Age: 26 Year
  Sex: Male

DRUGS (3)
  1. GEMCITABINE [Suspect]
     Active Substance: GEMCITABINE
     Indication: Nasopharyngeal cancer metastatic
     Dosage: CUMULATIVE DOSE -6000 MG/M2, GEMCITABINE (1,000 MG/M2 ON DAYS 1 AND 8), EVERY 3-WEEK CYCLE
     Dates: start: 2021, end: 2021
  2. CISPLATIN [Suspect]
     Active Substance: CISPLATIN
     Indication: Nasopharyngeal cancer metastatic
     Dosage: CUMULATIVE DOSE- 240 MG/M2, 80 MG/M2 ON DAY 1
     Dates: start: 2021, end: 2021
  3. CAMRELIZUMAB [Suspect]
     Active Substance: CAMRELIZUMAB
     Indication: Nasopharyngeal cancer metastatic
     Dosage: CUMULATIVE DOSE- 600 MG, 200 MG ON DAY 1
     Dates: start: 2021, end: 2021

REACTIONS (4)
  - Granulocytopenia [Unknown]
  - Thrombocytopenia [Unknown]
  - Transaminases increased [Unknown]
  - Leukopenia [Unknown]

NARRATIVE: CASE EVENT DATE: 20210101
